FAERS Safety Report 5959768-5 (Version None)
Quarter: 2008Q4

REPORT INFORMATION
  Report Type: 
  Country: None (occurrence: None)
  Receive Date: 20081119
  Receipt Date: 20081119
  Transmission Date: 20090506
  Serious: Yes (Life-Threatening)
  Sender: FDA-Public Use
  Company Number: None

PATIENT
  Age: 60 Year
  Sex: Male
  Weight: 56 kg

DRUGS (7)
  1. FLUCYTOSINE [Suspect]
     Indication: MENINGITIS
     Dosage: 1500 MG PO Q 6 HOURS
     Route: 048
     Dates: start: 20080521, end: 20080525
  2. AMBISOME [Concomitant]
  3. ACYCLOVIR [Concomitant]
  4. ZANTAC [Concomitant]
  5. HEPARIN [Concomitant]
  6. INSULIN [Concomitant]
  7. FENTANYL-100 [Concomitant]

REACTIONS (1)
  - WHITE BLOOD CELL COUNT DECREASED [None]
